FAERS Safety Report 25613153 (Version 1)
Quarter: 2025Q3

REPORT INFORMATION
  Report Type: Report from Study
  Country: US (occurrence: US)
  Receive Date: 20250728
  Receipt Date: 20250728
  Transmission Date: 20251021
  Serious: Yes (Other)
  Sender: ROCHE
  Company Number: US-ROCHE-10000255807

PATIENT
  Age: 30 Year
  Sex: Female
  Weight: 111.58 kg

DRUGS (1)
  1. OCREVUS [Suspect]
     Active Substance: OCRELIZUMAB
     Indication: Relapsing-remitting multiple sclerosis
     Dosage: DATE OF INFUSION: 08-NOV-2022, 24-APR-2023,23-OCT-2023, 14-AUG-2024, 17-AUG-2024, 27-AUG-2024.
     Route: 042
     Dates: start: 20221024, end: 20240817

REACTIONS (3)
  - Maternal exposure before pregnancy [Unknown]
  - Iron deficiency anaemia [Unknown]
  - Ectopic pregnancy [Unknown]

NARRATIVE: CASE EVENT DATE: 20240101
